FAERS Safety Report 13698519 (Version 1)
Quarter: 2017Q2

REPORT INFORMATION
  Report Type: Report from Study
  Country: US (occurrence: US)
  Receive Date: 20170628
  Receipt Date: 20170628
  Transmission Date: 20170830
  Serious: Yes (Hospitalization)
  Sender: FDA-Public Use
  Company Number: PHEH2017US019195

PATIENT
  Age: 41 Year
  Sex: Male

DRUGS (1)
  1. GILENYA [Suspect]
     Active Substance: FINGOLIMOD HYDROCHLORIDE
     Indication: RELAPSING-REMITTING MULTIPLE SCLEROSIS
     Dosage: 0.5 MG, QD
     Route: 048
     Dates: start: 20160911, end: 20170515

REACTIONS (5)
  - Multiple sclerosis relapse [Unknown]
  - Dizziness [Unknown]
  - Nausea [Unknown]
  - Food poisoning [Unknown]
  - Weight decreased [Unknown]

NARRATIVE: CASE EVENT DATE: 20170613
